FAERS Safety Report 4933157-4 (Version None)
Quarter: 2006Q1

REPORT INFORMATION
  Report Type: 
  Country: None (occurrence: None)
  Receive Date: 20060118
  Receipt Date: 20050912
  Transmission Date: 20060701
  Serious: Yes (Hospitalization)
  Sender: FDA-Public Use
  Company Number: US-JNJFOC-20050806911

PATIENT
  Sex: Female

DRUGS (1)
  1. DOXIL [Suspect]
     Indication: OVARIAN CANCER METASTATIC
     Dosage: 1 CYCLE ADMINISTERED PRIOR TO KIDNEY FAILURE
     Dates: start: 20050101, end: 20050101

REACTIONS (1)
  - RENAL FAILURE [None]
